FAERS Safety Report 10140186 (Version 2)
Quarter: 2014Q2

REPORT INFORMATION
  Report Type: Spontaneous
  Country: US (occurrence: US)
  Receive Date: 20140429
  Receipt Date: 20140430
  Transmission Date: 20141212
  Serious: Yes (Hospitalization, Other)
  Sender: FDA-Public Use
  Company Number: US-PFIZER INC-2014113747

PATIENT
  Age: 69 Year
  Sex: Male

DRUGS (5)
  1. NEURONTIN [Suspect]
     Dosage: UNK
  2. REQUIP [Suspect]
     Indication: RESTLESS LEGS SYNDROME
     Dosage: 2 MG, DAILY
     Route: 048
  3. PLAVIX [Concomitant]
     Dosage: UNK
  4. ALEVE [Concomitant]
     Dosage: UNK
  5. LORAZEPAM [Concomitant]
     Dosage: UNK

REACTIONS (19)
  - Head injury [Unknown]
  - Fall [Unknown]
  - Heart rate decreased [Unknown]
  - Suicidal ideation [Unknown]
  - Haemorrhage [Unknown]
  - Loss of consciousness [Unknown]
  - Mental impairment [Unknown]
  - Visual acuity reduced [Not Recovered/Not Resolved]
  - Laceration [Unknown]
  - Memory impairment [Not Recovered/Not Resolved]
  - Muscular weakness [Unknown]
  - Confusional state [Unknown]
  - Anxiety [Unknown]
  - Musculoskeletal stiffness [Unknown]
  - Pain [Unknown]
  - Ligament sprain [Not Recovered/Not Resolved]
  - Post-traumatic neck syndrome [Not Recovered/Not Resolved]
  - Therapy cessation [Unknown]
  - Gait disturbance [Unknown]
